FAERS Safety Report 8983976 (Version 1)
Quarter: 2012Q4

REPORT INFORMATION
  Report Type: Spontaneous
  Country: US (occurrence: None)
  Receive Date: 20121218
  Receipt Date: 20121218
  Transmission Date: 20130627
  Serious: Yes (Other)
  Sender: FDA-Public Use
  Company Number: None

PATIENT
  Age: 86 Year
  Sex: Female
  Weight: 74.84 kg

DRUGS (1)
  1. ULORIC [Suspect]
     Indication: GOUT
     Dates: start: 20120922

REACTIONS (5)
  - Nervousness [None]
  - Dyskinesia [None]
  - Feeling abnormal [None]
  - Pulse absent [None]
  - Feeling cold [None]
